FAERS Safety Report 8136460-2 (Version None)
Quarter: 2012Q1

REPORT INFORMATION
  Report Type: 
  Country: None (occurrence: None)
  Receive Date: 20120214
  Receipt Date: 20120202
  Transmission Date: 20120608
  Serious: Yes (Other)
  Sender: FDA-Public Use
  Company Number: CHPA2012US002593

PATIENT
  Sex: Male

DRUGS (2)
  1. EXCEDRIN (MIGRAINE) [Suspect]
     Dosage: UNK, UNK
     Route: 048
     Dates: start: 20040101
  2. EXCEDRIN EXTRA STRENGTH TABLETS [Suspect]
     Dosage: UNK, UNK
     Route: 048
     Dates: start: 20040101

REACTIONS (4)
  - GASTROINTESTINAL DISORDER [None]
  - CLUSTER HEADACHE [None]
  - ABDOMINAL PAIN UPPER [None]
  - APHAGIA [None]
